FAERS Safety Report 8264373-4 (Version None)
Quarter: 2012Q2

REPORT INFORMATION
  Report Type: 
  Country: None (occurrence: None)
  Receive Date: 20120406
  Receipt Date: 20120327
  Transmission Date: 20120825
  Serious: Yes (Other)
  Sender: FDA-Public Use
  Company Number: PHHY2011CA41124

PATIENT
  Sex: Female

DRUGS (3)
  1. ZOLEDRONOC ACID [Suspect]
     Indication: OSTEOPOROSIS
     Route: 042
     Dates: start: 20090324
  2. ZOLEDRONOC ACID [Suspect]
     Route: 042
     Dates: start: 20100413
  3. ZOLEDRONOC ACID [Suspect]
     Route: 042
     Dates: start: 20110512

REACTIONS (7)
  - FATIGUE [None]
  - NAUSEA [None]
  - MYALGIA [None]
  - HEADACHE [None]
  - SPINAL COMPRESSION FRACTURE [None]
  - MALAISE [None]
  - NASOPHARYNGITIS [None]
